FAERS Safety Report 10154298 (Version 2)
Quarter: 2014Q3

REPORT INFORMATION
  Report Type: Spontaneous
  Country: US (occurrence: US)
  Receive Date: 20140506
  Receipt Date: 20140703
  Transmission Date: 20150326
  Serious: Yes (Other)
  Sender: FDA-Public Use
  Company Number: US-BAYER-2014-066495

PATIENT
  Age: 41 Year
  Sex: Female

DRUGS (2)
  1. YAZ [Suspect]
     Active Substance: DROSPIRENONE\ETHINYL ESTRADIOL
     Dosage: UNK
     Dates: start: 20101113, end: 20120512
  2. GIANVI [Suspect]
     Active Substance: DROSPIRENONE\ETHINYL ESTRADIOL
     Dosage: UNK
     Dates: start: 20101113, end: 20120512

REACTIONS (8)
  - Emotional distress [None]
  - Thrombophlebitis superficial [None]
  - Nervousness [None]
  - Depression [None]
  - Pain [None]
  - Deep vein thrombosis [None]
  - Injury [None]
  - Fear of death [None]

NARRATIVE: CASE EVENT DATE: 20120514
